FAERS Safety Report 5859586-2 (Version None)
Quarter: 2008Q3

REPORT INFORMATION
  Report Type: 
  Country: None (occurrence: None)
  Receive Date: 20080827
  Receipt Date: 20080826
  Transmission Date: 20090109
  Serious: Yes (Other)
  Sender: FDA-Public Use
  Company Number: D0058483A

PATIENT
  Age: 10 Year
  Sex: Female

DRUGS (1)
  1. ATMADISC [Suspect]
     Indication: OBSTRUCTIVE AIRWAYS DISORDER
     Dosage: 2PUFF PER DAY
     Route: 055

REACTIONS (4)
  - ABDOMINAL PAIN [None]
  - GASTROENTERITIS [None]
  - NAUSEA [None]
  - VOMITING [None]
